FAERS Safety Report 15853673 (Version 2)
Quarter: 2019Q1

REPORT INFORMATION
  Report Type: Spontaneous
  Country: US (occurrence: US)
  Receive Date: 20190122
  Receipt Date: 20190131
  Transmission Date: 20190417
  Serious: No
  Sender: FDA-Public Use
  Company Number: US-PFIZER INC-2019027494

PATIENT
  Age: 34 Year
  Sex: Female

DRUGS (2)
  1. CARDURA [Suspect]
     Active Substance: DOXAZOSIN MESYLATE
     Dosage: UNK
  2. PREDNISONE. [Concomitant]
     Active Substance: PREDNISONE
     Dosage: 0.5 DF, DAILY (TAKE 0.5 TABLETS)
     Route: 048

REACTIONS (2)
  - Drug hypersensitivity [Unknown]
  - Palpitations [Unknown]
